FAERS Safety Report 12583527 (Version 1)
Quarter: 2016Q3

REPORT INFORMATION
  Report Type: Report from Study
  Country: US (occurrence: US)
  Receive Date: 20160722
  Receipt Date: 20160722
  Transmission Date: 20161109
  Serious: Yes (Other)
  Sender: FDA-Public Use
  Company Number: US-EISAI MEDICAL RESEARCH-EC-2016-015598

PATIENT
  Sex: Female

DRUGS (3)
  1. LENVIMA [Suspect]
     Active Substance: LENVATINIB
     Indication: THYROID CANCER
     Route: 048
     Dates: start: 20160319, end: 201603
  2. LENVIMA [Suspect]
     Active Substance: LENVATINIB
     Route: 048
     Dates: start: 2016, end: 2016
  3. LENVIMA [Suspect]
     Active Substance: LENVATINIB
     Dosage: DOSE DECREASED (UNKNOWN)
     Route: 048
     Dates: start: 2016, end: 201607

REACTIONS (12)
  - Oral pain [Not Recovered/Not Resolved]
  - Hypertension [Recovered/Resolved]
  - Dry eye [Unknown]
  - Stomatitis [Recovered/Resolved]
  - Dry mouth [Unknown]
  - Musculoskeletal pain [Not Recovered/Not Resolved]
  - Nausea [Not Recovered/Not Resolved]
  - Asthenia [Not Recovered/Not Resolved]
  - Dry skin [Unknown]
  - Cerebrovascular accident [Not Recovered/Not Resolved]
  - Headache [Not Recovered/Not Resolved]
  - Neck pain [Not Recovered/Not Resolved]

NARRATIVE: CASE EVENT DATE: 2016
